FAERS Safety Report 6215559-1 (Version None)
Quarter: 2009Q2

REPORT INFORMATION
  Report Type: 
  Country: None (occurrence: None)
  Receive Date: 20090605
  Receipt Date: 20090525
  Transmission Date: 20091009
  Serious: Yes (Other)
  Sender: FDA-Public Use
  Company Number: DE-RANBAXY-2009RR-24501

PATIENT
  Age: 76 Year
  Sex: Female

DRUGS (1)
  1. CEFUROX BASICS 500 MG TABLETTEN [Suspect]
     Dosage: 1000 MG, UNK
     Route: 048

REACTIONS (4)
  - ABDOMINAL PAIN [None]
  - ASTHENIA [None]
  - HYPOTENSION [None]
  - NAUSEA [None]
